FAERS Safety Report 25234272 (Version 1)
Quarter: 2025Q2

REPORT INFORMATION
  Report Type: Spontaneous
  Country: JP (occurrence: JP)
  Receive Date: 20250424
  Receipt Date: 20250424
  Transmission Date: 20250717
  Serious: Yes (Other)
  Sender: ROCHE
  Company Number: JP-CHUGAI-2025012403

PATIENT
  Age: 63 Year
  Sex: Female

DRUGS (5)
  1. ACTEMRA [Suspect]
     Active Substance: TOCILIZUMAB
     Indication: Castleman^s disease
     Route: 065
  2. ACTEMRA [Suspect]
     Active Substance: TOCILIZUMAB
     Route: 065
  3. METHYLPREDNISOLONE [Concomitant]
     Active Substance: METHYLPREDNISOLONE
     Indication: Castleman^s disease
     Route: 065
  4. SARILUMAB [Concomitant]
     Active Substance: SARILUMAB
     Indication: Castleman^s disease
  5. BARICITINIB [Concomitant]
     Active Substance: BARICITINIB

REACTIONS (2)
  - Pneumonia cytomegaloviral [Recovering/Resolving]
  - Off label use [Unknown]
